FAERS Safety Report 7012411-9 (Version None)
Quarter: 2010Q3

REPORT INFORMATION
  Report Type: 
  Country: None (occurrence: None)
  Receive Date: 20100924
  Receipt Date: 20100915
  Transmission Date: 20110219
  Serious: Yes (Other)
  Sender: FDA-Public Use
  Company Number: GB-ASTRAZENECA-2010SE42231

PATIENT
  Age: 11 Year
  Sex: Female

DRUGS (3)
  1. BUPIVACAINE HCL [Suspect]
     Indication: LOCAL ANAESTHESIA
     Route: 008
  2. BUPIVACAINE HCL [Suspect]
     Dosage: INFUSION RATE VARIED FROM 3 TO 12 MLS PER HOUR
     Route: 008
  3. FENTANYL CITRATE [Suspect]
     Indication: LOCAL ANAESTHESIA
     Dosage: 2 UG/ML, INFUSION RATE VARIED FROM 3 TO 12 MLS PER HOUR.
     Route: 008

REACTIONS (1)
  - PARALYSIS [None]
